FAERS Safety Report 21868086 (Version 2)
Quarter: 2023Q1

REPORT INFORMATION
  Report Type: Spontaneous
  Country: CN (occurrence: CN)
  Receive Date: 20230116
  Receipt Date: 20230125
  Transmission Date: 20230418
  Serious: Yes (Hospitalization)
  Sender: FDA-Public Use
  Company Number: CN-BIOGEN-2023BI01181271

PATIENT
  Age: 8 Year
  Sex: Male

DRUGS (4)
  1. SPINRAZA [Suspect]
     Active Substance: NUSINERSEN
     Indication: Spinal muscular atrophy
     Route: 050
  2. SPINRAZA [Suspect]
     Active Substance: NUSINERSEN
     Route: 050
  3. SPINRAZA [Suspect]
     Active Substance: NUSINERSEN
     Route: 050
  4. SPINRAZA [Suspect]
     Active Substance: NUSINERSEN
     Route: 050

REACTIONS (6)
  - COVID-19 [Not Recovered/Not Resolved]
  - Mycoplasma infection [Not Recovered/Not Resolved]
  - Pneumonia [Not Recovered/Not Resolved]
  - Product dose omission issue [Not Recovered/Not Resolved]
  - Dyspnoea [Not Recovered/Not Resolved]
  - Blood potassium decreased [Not Recovered/Not Resolved]

NARRATIVE: CASE EVENT DATE: 20221201
